FAERS Safety Report 5045200-5 (Version None)
Quarter: 2006Q3

REPORT INFORMATION
  Report Type: 
  Country: None (occurrence: None)
  Receive Date: 20060707
  Receipt Date: 20060105
  Transmission Date: 20061208
  Serious: Yes (Hospitalization)
  Sender: FDA-Public Use
  Company Number: FR-GLAXOSMITHKLINE-B0405760A

PATIENT
  Age: 1 Month
  Sex: Female

DRUGS (3)
  1. RETROVIR [Suspect]
     Indication: ANTIVIRAL PROPHYLAXIS
     Route: 048
     Dates: start: 20040301, end: 20040401
  2. COMBIVIR [Suspect]
     Dates: end: 20040301
  3. VIRACEPT [Concomitant]
     Dates: end: 20040301

REACTIONS (6)
  - ALANINE AMINOTRANSFERASE INCREASED [None]
  - ASPARTATE AMINOTRANSFERASE INCREASED [None]
  - BLOOD LACTIC ACID INCREASED [None]
  - DRUG EXPOSURE DURING PREGNANCY [None]
  - FEBRILE CONVULSION [None]
  - LYMPHOPENIA [None]
